FAERS Safety Report 16353457 (Version 1)
Quarter: 2019Q2

REPORT INFORMATION
  Report Type: Spontaneous
  Country: JP (occurrence: JP)
  Receive Date: 20190524
  Receipt Date: 20190524
  Transmission Date: 20190711
  Serious: Yes (Hospitalization, Other)
  Sender: FDA-Public Use
  Company Number: JP-MYLANLABS-2019M1049019

PATIENT
  Age: 86 Year
  Sex: Female

DRUGS (1)
  1. CLOPIDOGREL [Suspect]
     Active Substance: CLOPIDOGREL BISULFATE
     Indication: CEREBRAL INFARCTION
     Route: 048

REACTIONS (4)
  - Spinal cord compression [Recovered/Resolved]
  - Quadriplegia [Recovered/Resolved]
  - Asthenia [Recovered/Resolved]
  - Spinal epidural haematoma [Recovered/Resolved]
